FAERS Safety Report 7604181-8 (Version None)
Quarter: 2011Q3

REPORT INFORMATION
  Report Type: 
  Country: None (occurrence: None)
  Receive Date: 20110712
  Receipt Date: 20110701
  Transmission Date: 20111222
  Serious: Yes (Hospitalization)
  Sender: FDA-Public Use
  Company Number: US-MERCK-1102USA02268

PATIENT
  Age: 63 Year
  Sex: Female

DRUGS (14)
  1. ASCORBIC ACID [Concomitant]
     Route: 065
  2. FOSAMAX [Suspect]
     Indication: OSTEOPOROSIS
     Route: 048
     Dates: start: 20030401
  3. PREMPRO [Concomitant]
     Route: 065
  4. FOSAMAX [Suspect]
     Route: 048
     Dates: end: 20070501
  5. FOSAMAX [Suspect]
     Indication: OSTEOPENIA
     Route: 048
     Dates: start: 20030401
  6. FOSAMAX PLUS D [Suspect]
     Indication: OSTEOPENIA
     Route: 048
     Dates: start: 20070501, end: 20090201
  7. FOSAMAX PLUS D [Suspect]
     Route: 048
     Dates: start: 20080424
  8. FOSAMAX PLUS D [Suspect]
     Route: 048
     Dates: start: 20080424
  9. FOSAMAX PLUS D [Suspect]
     Indication: OSTEOPOROSIS
     Route: 048
     Dates: start: 20070501, end: 20090201
  10. CALCIUM (UNSPECIFIED) [Concomitant]
     Route: 065
  11. VITAMINS (UNSPECIFIED) [Concomitant]
     Route: 065
  12. FOSAMAX [Suspect]
     Route: 048
     Dates: end: 20070501
  13. VITAMIN E [Concomitant]
     Route: 065
  14. ACTONEL [Suspect]
     Indication: OSTEOPENIA
     Route: 065
     Dates: start: 20010101, end: 20030601

REACTIONS (3)
  - FALL [None]
  - COUGH [None]
  - FEMUR FRACTURE [None]
